FAERS Safety Report 16716960 (Version 4)
Quarter: 2020Q2

REPORT INFORMATION
  Report Type: Spontaneous
  Country: US (occurrence: US)
  Receive Date: 20190819
  Receipt Date: 20200520
  Transmission Date: 20200713
  Serious: Yes (Other)
  Sender: FDA-Public Use
  Company Number: US-BAYER-2019-002920

PATIENT
  Age: 30 Year
  Sex: Female

DRUGS (7)
  1. LEXAPRO [Concomitant]
     Active Substance: ESCITALOPRAM OXALATE
     Dosage: UNK
     Dates: start: 201101, end: 201410
  2. DEPO-PROVERA [Concomitant]
     Active Substance: MEDROXYPROGESTERONE ACETATE
     Dosage: UNK
     Dates: start: 201007, end: 201010
  3. ESSURE [Suspect]
     Active Substance: DEVICE
     Indication: FEMALE STERILISATION
     Dosage: UNK
     Dates: start: 20100701, end: 20140826
  4. AYGESTIN [Concomitant]
     Active Substance: NORETHINDRONE ACETATE
     Dosage: UNK
     Dates: start: 201102, end: 201410
  5. PROZAC [Concomitant]
     Active Substance: FLUOXETINE HYDROCHLORIDE
     Dosage: UNK
     Dates: start: 201205, end: 201410
  6. XANAX [Concomitant]
     Active Substance: ALPRAZOLAM
     Dosage: UNK
     Dates: start: 201101, end: 201410
  7. CELEXA [Concomitant]
     Active Substance: CITALOPRAM HYDROBROMIDE
     Dosage: UNK
     Dates: start: 201101, end: 201410

REACTIONS (12)
  - Pelvic pain [Recovered/Resolved]
  - Depression [Unknown]
  - Abdominal pain [Unknown]
  - Menorrhagia [Recovered/Resolved]
  - Genital haemorrhage [Recovered/Resolved]
  - Post procedural complication [Unknown]
  - Urinary tract disorder [Recovered/Resolved]
  - Dysmenorrhoea [Unknown]
  - Mental disorder [Unknown]
  - Vaginal haemorrhage [Recovered/Resolved]
  - Anxiety [Unknown]
  - Bladder disorder [Recovered/Resolved]

NARRATIVE: CASE EVENT DATE: 201008
